FAERS Safety Report 5272867-9 (Version None)
Quarter: 2007Q1

REPORT INFORMATION
  Report Type: 
  Country: None (occurrence: None)
  Receive Date: 20070316
  Receipt Date: 20070305
  Transmission Date: 20070707
  Serious: Yes (Hospitalization)
  Sender: FDA-Public Use
  Company Number: 2006RR-02582

PATIENT
  Age: 80 Year
  Sex: Female

DRUGS (5)
  1. BENDROFLUAZIDE(BENDROFLUMETHIAZIDE) UNKNOWN [Suspect]
     Indication: HYPERTENSION
     Dosage: 2.5 MG, QD, ORAL
     Route: 048
     Dates: start: 20060424, end: 20060510
  2. CITALOPRAM TABLET 20MG(CITALOPRAM) UBKNOWN [Suspect]
     Indication: DEPRESSION
     Dosage: 20 MG, ORAL
     Route: 048
     Dates: start: 20060508, end: 20060510
  3. CO-DYDRAMOL ORAL (HYDROCODEINE) [Concomitant]
  4. LEVOTHYROXINE SODIUM [Concomitant]
  5. ZOPICLONE [Concomitant]

REACTIONS (11)
  - BLOOD PRESSURE DECREASED [None]
  - DEHYDRATION [None]
  - DIARRHOEA [None]
  - DIZZINESS [None]
  - FATIGUE [None]
  - HYPOKALAEMIA [None]
  - HYPONATRAEMIA [None]
  - MALAISE [None]
  - NAUSEA [None]
  - THIRST [None]
  - VOMITING [None]
